FAERS Safety Report 9669663 (Version 3)
Quarter: 2013Q4

REPORT INFORMATION
  Report Type: Report from Study
  Country: FR (occurrence: FR)
  Receive Date: 20131105
  Receipt Date: 20131216
  Transmission Date: 20140711
  Serious: Yes (Death, Hospitalization, Other)
  Sender: FDA-Public Use
  Company Number: FR-INCYTE CORPORATION-2013IN002556

PATIENT
  Sex: 0

DRUGS (12)
  1. INC424 [Suspect]
     Indication: MYELOFIBROSIS
     Dosage: 15 MG, BID
     Route: 048
     Dates: start: 20130416, end: 20130505
  2. INC424 [Suspect]
     Dosage: 5 MG, BID
     Route: 048
     Dates: start: 20130506, end: 20130619
  3. INC424 [Suspect]
     Dosage: 25 MG, BID
     Route: 048
     Dates: start: 20130620, end: 20130703
  4. INC424 [Suspect]
     Dosage: 15 MG, BID
     Route: 048
     Dates: start: 20130704, end: 20130801
  5. INC424 [Suspect]
     Dosage: 15 MG, BID
     Route: 048
     Dates: start: 20130803
  6. INC424 [Suspect]
     Dosage: 5 MG, BID
     Route: 048
     Dates: end: 20130923
  7. INC424 [Suspect]
     Dosage: 5 MG, QD
     Route: 048
     Dates: start: 20130924, end: 20130926
  8. CYCLOSPORIN [Suspect]
     Dosage: UNKNOWN
  9. VANCOMYCIN (NGX) [Suspect]
     Dosage: UNKNOWN
  10. PREDNISIONE [Concomitant]
  11. MELPHALAN [Concomitant]
     Dosage: UNK
     Dates: start: 20130928
  12. FLUDARABINE [Concomitant]
     Dosage: UNK
     Dates: start: 20130928, end: 20130929

REACTIONS (4)
  - Acute graft versus host disease [Fatal]
  - Multi-organ failure [Fatal]
  - Renal failure acute [Recovering/Resolving]
  - Human herpes virus 6 serology positive [Recovering/Resolving]
